FAERS Safety Report 7998028 (Version 3)
Quarter: 2016Q3

REPORT INFORMATION
  Report Type: Report from Study
  Country: US (occurrence: US)
  Receive Date: 20110620
  Receipt Date: 20160930
  Transmission Date: 20161109
  Serious: Yes (Hospitalization, Other)
  Sender: FDA-Public Use
  Company Number: US-ROCHE-782599

PATIENT
  Age: 53 Year
  Sex: Female
  Weight: 91 kg

DRUGS (8)
  1. IXABEPILONE [Suspect]
     Active Substance: IXABEPILONE
     Route: 042
  2. BEVACIZUMAB [Suspect]
     Active Substance: BEVACIZUMAB
     Indication: ENDOMETRIAL CANCER
     Dosage: OVER 30-90 MINUTES ON DAY 1
     Route: 042
  3. AMLODIPINE [Concomitant]
     Active Substance: AMLODIPINE BESYLATE
  4. IXABEPILONE [Suspect]
     Active Substance: IXABEPILONE
     Route: 042
  5. IXABEPILONE [Suspect]
     Active Substance: IXABEPILONE
     Indication: ENDOMETRIAL CANCER
     Dosage: OVER 1 HOUR
     Route: 042
  6. BEVACIZUMAB [Suspect]
     Active Substance: BEVACIZUMAB
     Route: 042
  7. CARBOPLATIN. [Suspect]
     Active Substance: CARBOPLATIN
     Indication: ENDOMETRIAL CANCER
     Dosage: AUC 6 OVER 30 MINUTES ON DAY 1
     Route: 042
     Dates: start: 20100503
  8. BEVACIZUMAB [Suspect]
     Active Substance: BEVACIZUMAB
     Route: 042

REACTIONS (16)
  - Urinary tract infection [Unknown]
  - Hypophosphataemia [Unknown]
  - Hypoalbuminaemia [Unknown]
  - Neutrophil count decreased [Unknown]
  - Abdominal infection [Unknown]
  - Vomiting [Unknown]
  - White blood cell count decreased [Unknown]
  - Hypocalcaemia [Unknown]
  - Decreased appetite [Unknown]
  - Abdominal pain [Unknown]
  - Constipation [Unknown]
  - Gastrointestinal anastomotic leak [Unknown]
  - Fatigue [Unknown]
  - Hypokalaemia [Unknown]
  - Nausea [Unknown]
  - Anaemia [Unknown]

NARRATIVE: CASE EVENT DATE: 20100616
